FAERS Safety Report 4686292-2 (Version None)
Quarter: 2005Q2

REPORT INFORMATION
  Report Type: 
  Country: None (occurrence: None)
  Receive Date: 20050606
  Receipt Date: 20050524
  Transmission Date: 20051028
  Serious: Yes (Hospitalization)
  Sender: FDA-Public Use
  Company Number: 2005081046

PATIENT
  Age: 68 Year
  Sex: Male

DRUGS (3)
  1. ARTHROTEC [Suspect]
     Indication: NECK PAIN
     Dosage: 150 MG (50 MG, 1 D), ORAL
     Route: 048
     Dates: start: 20050301, end: 20050413
  2. CALCIPOTRIOL (CALCIPOTRIOL) [Concomitant]
  3. ALL OTHER THERAPEUTIC PRODUCTS (ALL OTHER THERAPEUTIC PRODUCTS) [Concomitant]

REACTIONS (2)
  - PAIN [None]
  - RENAL FAILURE ACUTE [None]
